FAERS Safety Report 22862277 (Version 3)
Quarter: 2023Q4

REPORT INFORMATION
  Report Type: Report from Study
  Country: CO (occurrence: CO)
  Receive Date: 20230824
  Receipt Date: 20231026
  Transmission Date: 20240109
  Serious: Yes (Hospitalization, Other)
  Sender: FDA-Public Use
  Company Number: CO-ABBVIE-5379718

PATIENT
  Age: 77 Year
  Sex: Male
  Weight: 64 kg

DRUGS (3)
  1. VENCLEXTA [Suspect]
     Active Substance: VENETOCLAX
     Indication: Acute myeloid leukaemia
     Dosage: FORM STRENGTH 100 MILLIGRAM
     Route: 048
     Dates: start: 20220814, end: 20230926
  2. AZACITIDINE [Concomitant]
     Active Substance: AZACITIDINE
     Indication: Acute myeloid leukaemia
     Route: 058
     Dates: start: 20230822, end: 20230827
  3. AZACITIDINE [Concomitant]
     Active Substance: AZACITIDINE
     Indication: Acute myeloid leukaemia
     Route: 058
     Dates: start: 202307, end: 202307

REACTIONS (13)
  - Pain [Recovering/Resolving]
  - Platelet count decreased [Unknown]
  - Blast cell count increased [Unknown]
  - Immunosuppression [Unknown]
  - Inflammation [Recovering/Resolving]
  - White blood cell count decreased [Unknown]
  - Spinal column injury [Recovering/Resolving]
  - Gastrointestinal disorder [Unknown]
  - Back pain [Recovering/Resolving]
  - Neutrophil count decreased [Unknown]
  - Influenza [Recovered/Resolved]
  - Immunodeficiency [Unknown]
  - Acute myeloid leukaemia recurrent [Unknown]

NARRATIVE: CASE EVENT DATE: 20230801
